FAERS Safety Report 19963058 (Version 1)
Quarter: 2021Q4

REPORT INFORMATION
  Report Type: Spontaneous
  Country: US (occurrence: US)
  Receive Date: 20211013
  Receipt Date: 20211013
  Transmission Date: 20220303
  Serious: Yes (Hospitalization)
  Sender: FDA-Public Use
  Company Number: None

PATIENT
  Age: 78 Year
  Sex: Male
  Weight: 97.3 kg

DRUGS (1)
  1. CASIRIVIMAB\IMDEVIMAB [Suspect]
     Active Substance: CASIRIVIMAB\IMDEVIMAB
     Indication: COVID-19
     Route: 042
     Dates: start: 20211011, end: 20211011

REACTIONS (9)
  - Asthenia [None]
  - Gait inability [None]
  - Chills [None]
  - Confusional state [None]
  - Pyrexia [None]
  - Tachycardia [None]
  - Tachypnoea [None]
  - Leukopenia [None]
  - Chest X-ray abnormal [None]

NARRATIVE: CASE EVENT DATE: 20211011
